FAERS Safety Report 9225494 (Version 1)
Quarter: 2013Q2

REPORT INFORMATION
  Report Type: Spontaneous
  Country: US (occurrence: US)
  Receive Date: 20130411
  Receipt Date: 20130411
  Transmission Date: 20140414
  Serious: Yes (Other)
  Sender: FDA-Public Use
  Company Number: US-PFIZER INC-2013114082

PATIENT
  Age: 73 Year
  Sex: Female
  Weight: 61.22 kg

DRUGS (4)
  1. NEURONTIN [Suspect]
     Indication: NERVE INJURY
     Dosage: 800 MG, 1X/DAY
     Dates: start: 2000
  2. NEURONTIN [Suspect]
     Dosage: 1600 MG, 1X/DAY
  3. NEURONTIN [Suspect]
     Dosage: 2400 MG, 1X/DAY
  4. NEURONTIN [Suspect]
     Dosage: 2000 MG, 1X/DAY

REACTIONS (4)
  - Convulsion [Unknown]
  - Drug ineffective [Unknown]
  - Balance disorder [Unknown]
  - Nervousness [Unknown]
